FAERS Safety Report 24013803 (Version 1)
Quarter: 2024Q2

REPORT INFORMATION
  Report Type: Spontaneous
  Country: US (occurrence: US)
  Receive Date: 20240626
  Receipt Date: 20240626
  Transmission Date: 20240716
  Serious: No
  Sender: FDA-Public Use
  Company Number: US-ALCON LABORATORIES-ALC2024US001778

PATIENT
  Sex: Female

DRUGS (1)
  1. PATADAY TWICE A DAY RELIEF [Suspect]
     Active Substance: OLOPATADINE HYDROCHLORIDE
     Indication: Eye allergy
     Dosage: ONE DROP IN EACH EYE, BID
     Route: 047
     Dates: start: 20240327, end: 20240328

REACTIONS (2)
  - Eye irritation [Recovered/Resolved]
  - Eye swelling [Recovered/Resolved]

NARRATIVE: CASE EVENT DATE: 20240327
